FAERS Safety Report 4305994-0 (Version None)
Quarter: 2004Q1

REPORT INFORMATION
  Report Type: 
  Country: None (occurrence: None)
  Receive Date: 20040227
  Receipt Date: 20040218
  Transmission Date: 20041129
  Serious: Yes (Other)
  Sender: FDA-Public Use
  Company Number: 200410575JP

PATIENT
  Sex: 0

DRUGS (2)
  1. TAXOTERE [Suspect]
     Indication: NEOPLASM MALIGNANT
     Route: 013
     Dates: start: 20040122, end: 20040122
  2. RADIATION THERAPY [Concomitant]
     Indication: NEOPLASM MALIGNANT
     Dates: start: 20040122

REACTIONS (2)
  - ANURIA [None]
  - DISSEMINATED INTRAVASCULAR COAGULATION [None]
